FAERS Safety Report 4302484-6 (Version None)
Quarter: 2004Q1

REPORT INFORMATION
  Report Type: 
  Country: None (occurrence: None)
  Receive Date: 20040218
  Receipt Date: 20030908
  Transmission Date: 20041129
  Serious: Yes (Hospitalization)
  Sender: FDA-Public Use
  Company Number: PHEH2003US06037

PATIENT
  Age: 72 Year
  Sex: Female
  Weight: 83 kg

DRUGS (9)
  1. DIOVAN [Suspect]
     Indication: HYPERTENSION
     Dosage: 160 MG, QD, ORAL
     Route: 048
     Dates: start: 20030101, end: 20030714
  2. ALLEGRA [Concomitant]
  3. TYLENOL (CAPLET) [Concomitant]
  4. LASIX [Concomitant]
  5. CELEBREX [Concomitant]
  6. PRILOSEC [Concomitant]
  7. PRAVACHOL [Concomitant]
  8. POTASSIUM (POTASSIUM) [Concomitant]
  9. AEROBID [Concomitant]

REACTIONS (1)
  - ANGIONEUROTIC OEDEMA [None]
